FAERS Safety Report 8101208-4 (Version None)
Quarter: 2012Q1

REPORT INFORMATION
  Report Type: 
  Country: None (occurrence: None)
  Receive Date: 20120129
  Receipt Date: 20111020
  Transmission Date: 20120608
  Serious: No
  Sender: FDA-Public Use
  Company Number: US-ABBOTT-11P-163-0864078-00

PATIENT
  Sex: Female

DRUGS (15)
  1. MORPHINE [Concomitant]
     Indication: PAIN
  2. FOSAMAX [Concomitant]
     Indication: OSTEOPOROSIS
     Dosage: WEEKLY
  3. PEPCID [Concomitant]
     Indication: DRUG THERAPY
  4. TRILIPIX [Concomitant]
     Indication: BLOOD CHOLESTEROL INCREASED
  5. PROZAC [Concomitant]
     Indication: DEPRESSION
     Dosage: DAILY
  6. AMRIX [Concomitant]
     Indication: MUSCLE RELAXANT THERAPY
  7. HYDROCORTISONE [Concomitant]
     Indication: CROHN'S DISEASE
     Dosage: 2 TABS IN AM, 1 TAB IIN PM
  8. PEPCID [Concomitant]
     Indication: NAUSEA
     Dosage: DAILY
  9. HUMIRA [Suspect]
     Indication: CROHN'S DISEASE
     Dates: start: 20110903
  10. XANAX [Concomitant]
     Indication: ANXIETY
     Dosage: 1-2 TABS AS NEEDED
  11. LOTREL [Concomitant]
     Indication: HYPERTENSION
  12. TOPROL-XL [Concomitant]
     Indication: HEART RATE IRREGULAR
     Dosage: DAILY
  13. PROZAC [Concomitant]
     Indication: ANXIETY
  14. LOMOTIL [Concomitant]
     Indication: DIARRHOEA
  15. LOMOTIL [Concomitant]
     Indication: CROHN'S DISEASE

REACTIONS (3)
  - INCORRECT DOSE ADMINISTERED [None]
  - PAIN IN EXTREMITY [None]
  - JOINT STIFFNESS [None]
